FAERS Safety Report 6752400-2 (Version None)
Quarter: 2010Q2

REPORT INFORMATION
  Report Type: 
  Country: None (occurrence: None)
  Receive Date: 20100601
  Receipt Date: 20100601
  Transmission Date: 20101027
  Serious: Yes (Other)
  Sender: FDA-Public Use
  Company Number: None

PATIENT
  Age: 22 Year
  Sex: Male
  Weight: 72.5755 kg

DRUGS (1)
  1. STARTER KIT [Suspect]
     Dates: start: 20100523, end: 20100526

REACTIONS (6)
  - ARTHRALGIA [None]
  - CHEST PAIN [None]
  - LARYNGITIS [None]
  - OROPHARYNGEAL PAIN [None]
  - PNEUMONIA [None]
  - SINUS CONGESTION [None]
